FAERS Safety Report 20211245 (Version 1)
Quarter: 2021Q4

REPORT INFORMATION
  Report Type: Spontaneous
  Country: US (occurrence: None)
  Receive Date: 20211220
  Receipt Date: 20211220
  Transmission Date: 20220303
  Serious: Yes (Death)
  Sender: FDA-Public Use
  Company Number: None

PATIENT
  Age: 34 Year
  Sex: Female
  Weight: 147.1 kg

DRUGS (1)
  1. RITUXAN [Suspect]
     Active Substance: RITUXIMAB
     Dosage: OTHER FREQUENCY : Q 2 WKS X 2, 2X/YR;?
     Route: 041
     Dates: start: 20210123

REACTIONS (3)
  - Throat irritation [None]
  - Swelling face [None]
  - Infusion related reaction [None]

NARRATIVE: CASE EVENT DATE: 20211210
